FAERS Safety Report 13992196 (Version 1)
Quarter: 2017Q3

REPORT INFORMATION
  Report Type: Spontaneous
  Country: US (occurrence: US)
  Receive Date: 20170920
  Receipt Date: 20170920
  Transmission Date: 20171128
  Serious: No
  Sender: FDA-Public Use
  Company Number: US-JNJFOC-20170811538

PATIENT
  Sex: Male

DRUGS (6)
  1. RISPERDAL [Suspect]
     Active Substance: RISPERIDONE
     Indication: ATTENTION DEFICIT/HYPERACTIVITY DISORDER
     Dosage: EVERY NIGHT AT BEDTIME
     Route: 065
  2. RISPERDAL [Suspect]
     Active Substance: RISPERIDONE
     Indication: AFFECTIVE DISORDER
     Dosage: EVERY NIGHT AT BEDTIME
     Route: 065
  3. VYVANSE [Concomitant]
     Active Substance: LISDEXAMFETAMINE DIMESYLATE
     Dosage: EVERY MORNING
     Route: 065
  4. RISPERDAL [Suspect]
     Active Substance: RISPERIDONE
     Indication: AFFECTIVE DISORDER
     Route: 065
     Dates: start: 2010
  5. RISPERDAL [Suspect]
     Active Substance: RISPERIDONE
     Indication: ATTENTION DEFICIT/HYPERACTIVITY DISORDER
     Route: 065
     Dates: start: 2010
  6. CLONIDINE. [Concomitant]
     Active Substance: CLONIDINE
     Dosage: EVERY MORNING AND HOUR OF SLEEP
     Route: 065

REACTIONS (4)
  - Hallucination, auditory [Unknown]
  - Treatment noncompliance [Unknown]
  - Enuresis [Unknown]
  - Nipple swelling [Recovering/Resolving]
